FAERS Safety Report 8783220 (Version 1)
Quarter: 2012Q4

REPORT INFORMATION
  Report Type: 
  Country: US (occurrence: US)
  Receive Date: 20120913
  Receipt Date: 20120913
  Transmission Date: 20130627
  Serious: Yes (Hospitalization)
  Sender: FDA-Public Use
  Company Number: US-VERTEX PHARMACEUTICAL INC.-AE-2012-008769

PATIENT
  Sex: Male

DRUGS (7)
  1. INCIVEK [Suspect]
     Indication: HEPATITIS C
     Route: 048
     Dates: start: 20120112, end: 20120309
  2. PEGASYS [Concomitant]
     Indication: HEPATITIS C
     Dates: start: 19970101, end: 19971101
  3. PEGASYS [Concomitant]
     Dates: start: 20070101, end: 20080101
  4. PEGASYS [Concomitant]
     Dates: start: 20111215, end: 20120309
  5. RIBAVIRIN [Concomitant]
     Indication: HEPATITIS C
     Dates: start: 19970101, end: 19971101
  6. RIBAVIRIN [Concomitant]
     Dates: start: 20070101, end: 20080101
  7. RIBAVIRIN [Concomitant]
     Dates: start: 20111215, end: 20120309

REACTIONS (3)
  - Red blood cell count decreased [Unknown]
  - White blood cell count decreased [Unknown]
  - Cough [Unknown]
